FAERS Safety Report 8990885 (Version 1)
Quarter: 2012Q4

REPORT INFORMATION
  Report Type: Spontaneous
  Country: US (occurrence: None)
  Receive Date: 20121221
  Receipt Date: 20121221
  Transmission Date: 20130627
  Serious: Yes (Hospitalization, Other)
  Sender: FDA-Public Use
  Company Number: US-ACCORD-015584

PATIENT
  Age: 50 Year
  Sex: Male

DRUGS (4)
  1. LEVETIRACETAM (LEVETIRACETAM) [Suspect]
     Indication: DRUG USE FOR UNKNOWN INDICATION
     Route: 048
  2. VALPROAIC ACID (VALPROIC ACID) [Concomitant]
  3. GABAPENTIN (GABAPENTIN) [Concomitant]
  4. ESOMEPRAZOLE (ESOMEPRAZOLE) [Concomitant]

REACTIONS (7)
  - Incorrect dose administered [None]
  - Acute psychosis [None]
  - Pruritus [None]
  - Agitation [None]
  - Formication [None]
  - Scratch [None]
  - Hallucination, visual [None]
